FAERS Safety Report 4873465-9 (Version None)
Quarter: 2005Q4

REPORT INFORMATION
  Report Type: 
  Country: None (occurrence: None)
  Receive Date: 20051201
  Receipt Date: 20050830
  Transmission Date: 20060501
  Serious: No
  Sender: FDA-Public Use
  Company Number: 2005PV001378

PATIENT
  Age: 75 Year
  Sex: Female
  Weight: 104.3273 kg

DRUGS (2)
  1. BYETTA [Suspect]
     Indication: DIABETES MELLITUS NON-INSULIN-DEPENDENT
     Dosage: 5 MCG; 10 MCG : BID, SC
     Route: 058
     Dates: start: 20050701, end: 20050821
  2. BYETTA [Suspect]
     Indication: DIABETES MELLITUS NON-INSULIN-DEPENDENT
     Dosage: 5 MCG; 10 MCG : BID, SC
     Route: 058
     Dates: start: 20050822

REACTIONS (5)
  - COLD SWEAT [None]
  - DIZZINESS [None]
  - NAUSEA [None]
  - RETCHING [None]
  - SALIVARY HYPERSECRETION [None]
